FAERS Safety Report 15670834 (Version 1)
Quarter: 2018Q4

REPORT INFORMATION
  Report Type: Spontaneous
  Country: IT (occurrence: IT)
  Receive Date: 20181129
  Receipt Date: 20181129
  Transmission Date: 20190205
  Serious: Yes (Hospitalization)
  Sender: FDA-Public Use
  Company Number: PHHY2018IT168628

PATIENT
  Age: 72 Year
  Sex: Female

DRUGS (2)
  1. ALMARYTM [Suspect]
     Active Substance: FLECAINIDE ACETATE
     Indication: ARRHYTHMIA
     Dosage: 300 MG, TOTAL
     Route: 048
     Dates: start: 20180925, end: 20180925
  2. BISOPROLOL FUMARATE. [Suspect]
     Active Substance: BISOPROLOL FUMARATE
     Indication: HYPERTENSION
     Dosage: 7.5 MG, TOTAL
     Route: 048
     Dates: start: 20180925, end: 20180925

REACTIONS (2)
  - Presyncope [Recovering/Resolving]
  - Medication error [Recovering/Resolving]

NARRATIVE: CASE EVENT DATE: 20180925
